FAERS Safety Report 23158339 (Version 1)
Quarter: 2023Q4

REPORT INFORMATION
  Report Type: Spontaneous
  Country: ES (occurrence: ES)
  Receive Date: 20231108
  Receipt Date: 20231108
  Transmission Date: 20240109
  Serious: Yes (Life-Threatening, Hospitalization)
  Sender: FDA-Public Use
  Company Number: None

PATIENT
  Age: 59 Year
  Sex: Male
  Weight: 112 kg

DRUGS (4)
  1. LOSARTAN POTASSIUM AND HYDROCHLOROTHIAZIDE [Suspect]
     Active Substance: HYDROCHLOROTHIAZIDE\LOSARTAN POTASSIUM
     Indication: Hypertension
     Dosage: 1-0-0 (28 TABLETS)
     Route: 048
     Dates: start: 20111205, end: 20231021
  2. IBUPROFEN [Suspect]
     Active Substance: IBUPROFEN
     Indication: Myalgia
     Dosage: 1-1-1
     Route: 048
     Dates: start: 20120528, end: 20231021
  3. RIVOTRIL [Concomitant]
     Active Substance: CLONAZEPAM
     Indication: Restless legs syndrome
     Dosage: 0.5MG 0-1-1-1 PLUS 2MG AT LUNCH SINCE 20-SEP-2023 (60 TABLETS)
     Route: 048
     Dates: start: 20230920, end: 20231021
  4. RIVOTRIL [Concomitant]
     Active Substance: CLONAZEPAM
     Dosage: 0.5MG 0-1-1-1 PLUS 2MG AT LUNCH SINCE 20-SEP-2023 (60 TABLETS)
     Route: 048
     Dates: start: 20110611, end: 20230919

REACTIONS (2)
  - Hyperkalaemia [Recovered/Resolved]
  - Renal failure [Recovered/Resolved]

NARRATIVE: CASE EVENT DATE: 20231021
